FAERS Safety Report 15138812 (Version 2)
Quarter: 2018Q3

REPORT INFORMATION
  Report Type: Spontaneous
  Country: FR (occurrence: FR)
  Receive Date: 20180713
  Receipt Date: 20180727
  Transmission Date: 20181010
  Serious: Yes (Other)
  Sender: FDA-Public Use
  Company Number: FR-TEVA-2018-FR-925083

PATIENT
  Age: 68 Year
  Sex: Female
  Weight: 59 kg

DRUGS (3)
  1. ACETATE DE CYPROTERONE [Concomitant]
  2. TERBINAFINE. [Suspect]
     Active Substance: TERBINAFINE
     Indication: FUNGAL INFECTION
     Route: 048
  3. FEMSEPT 50 MICROGRAMMES/24 HEURES, DISPOSITIF TRANSDERMIQUE [Concomitant]

REACTIONS (1)
  - Myasthenic syndrome [Recovered/Resolved]
